FAERS Safety Report 6831434-3 (Version None)
Quarter: 2010Q3

REPORT INFORMATION
  Report Type: 
  Country: None (occurrence: None)
  Receive Date: 20100712
  Receipt Date: 20100625
  Transmission Date: 20110219
  Serious: Yes (Hospitalization)
  Sender: FDA-Public Use
  Company Number: PHHO2010DE09186

PATIENT
  Sex: Male

DRUGS (2)
  1. SIMULECT [Suspect]
     Indication: RENAL TRANSPLANT
  2. NO TREATMENT RECEIVED NOMED [Suspect]
     Indication: RENAL TRANSPLANT
     Dosage: NO TREATMENT

REACTIONS (5)
  - RENAL FAILURE ACUTE [None]
  - RENAL HAEMORRHAGE [None]
  - SURGERY [None]
  - URETERAL CATHETERISATION [None]
  - URINARY INCONTINENCE [None]
